FAERS Safety Report 7230450-X (Version None)
Quarter: 2011Q1

REPORT INFORMATION
  Report Type: 
  Country: None (occurrence: None)
  Receive Date: 20110118
  Receipt Date: 20110110
  Transmission Date: 20110831
  Serious: Yes (Hospitalization)
  Sender: FDA-Public Use
  Company Number: US-SANOFI-AVENTIS-2011SA002378

PATIENT
  Age: 74 Year
  Sex: Male

DRUGS (4)
  1. TRACLEER [Suspect]
     Route: 048
     Dates: start: 20100801
  2. ACETYLSALICYLIC ACID [Suspect]
     Route: 048
  3. TRACLEER [Suspect]
     Indication: PULMONARY ARTERIAL HYPERTENSION
     Route: 048
     Dates: start: 20100101
  4. CLOPIDOGREL BISULFATE [Suspect]
     Route: 048

REACTIONS (4)
  - ASTHENIA [None]
  - HAEMOGLOBIN DECREASED [None]
  - PULMONARY OEDEMA [None]
  - GASTROINTESTINAL HAEMORRHAGE [None]
